FAERS Safety Report 17269353 (Version 1)
Quarter: 2020Q1

REPORT INFORMATION
  Report Type: Spontaneous
  Country: AT (occurrence: AT)
  Receive Date: 20200114
  Receipt Date: 20200114
  Transmission Date: 20200409
  Serious: Yes (Other)
  Sender: FDA-Public Use
  Company Number: AT-BAYER-2020-005568

PATIENT
  Age: 55 Year
  Sex: Female

DRUGS (1)
  1. ULTRAVIST [Suspect]
     Active Substance: IOPROMIDE
     Route: 042
     Dates: start: 20190214, end: 20190214

REACTIONS (4)
  - Dizziness [Unknown]
  - Panic reaction [Unknown]
  - Drug intolerance [Unknown]
  - Palpitations [Unknown]

NARRATIVE: CASE EVENT DATE: 20190214
